FAERS Safety Report 21006888 (Version 1)
Quarter: 2022Q2

REPORT INFORMATION
  Report Type: Spontaneous
  Country: US (occurrence: US)
  Receive Date: 20220625
  Receipt Date: 20220625
  Transmission Date: 20220721
  Serious: No
  Sender: FDA-Public Use
  Company Number: US-CELGENE-USA-20210301035

PATIENT
  Age: 77 Year
  Sex: Male

DRUGS (2)
  1. REVLIMID [Suspect]
     Active Substance: LENALIDOMIDE
     Indication: Plasma cell myeloma
     Dosage: 15 MILLIGRAM
     Route: 048
     Dates: start: 20210302
  2. REVLIMID [Suspect]
     Active Substance: LENALIDOMIDE
     Indication: Hyperlipidaemia
     Dosage: FREQUENCY-TAKE 1 CAPSULE BY MOUTH ONCE DAILY FOR 21 DAYS.
     Route: 048
     Dates: start: 20210302

REACTIONS (1)
  - Hypertension [Recovered/Resolved]

NARRATIVE: CASE EVENT DATE: 20210301
